FAERS Safety Report 7945440-9 (Version None)
Quarter: 2011Q4

REPORT INFORMATION
  Report Type: 
  Country: None (occurrence: None)
  Receive Date: 20111129
  Receipt Date: 20111116
  Transmission Date: 20120403
  Serious: Yes (Other)
  Sender: FDA-Public Use
  Company Number: US-ELI_LILLY_AND_COMPANY-US201111005587

PATIENT
  Sex: Male

DRUGS (5)
  1. HUMALOG [Suspect]
     Indication: DIABETES MELLITUS
     Dosage: UNK, PRN
     Dates: start: 20111001
  2. LANTUS [Concomitant]
  3. PREDNISONE TAB [Concomitant]
     Dosage: UNK
  4. HUMULIN N [Suspect]
     Indication: DIABETES MELLITUS
  5. HUMALOG [Suspect]
     Dosage: UNK, PRN
     Dates: start: 20060101

REACTIONS (6)
  - DISORIENTATION [None]
  - EXPIRED DRUG ADMINISTERED [None]
  - CYSTITIS [None]
  - BLOOD GLUCOSE INCREASED [None]
  - WRONG TECHNIQUE IN DRUG USAGE PROCESS [None]
  - FAECAL INCONTINENCE [None]
